FAERS Safety Report 9144418 (Version 1)
Quarter: 2013Q1

REPORT INFORMATION
  Report Type: Spontaneous
  Country: US (occurrence: US)
  Receive Date: 20130306
  Receipt Date: 20130306
  Transmission Date: 20140127
  Serious: Yes (Other)
  Sender: FDA-Public Use
  Company Number: US-ROCHE-1097299

PATIENT
  Sex: Female
  Weight: 65.83 kg

DRUGS (1)
  1. ACCUTANE [Suspect]
     Indication: ACNE
     Route: 065
     Dates: start: 198603, end: 198611

REACTIONS (8)
  - Crohn^s disease [Unknown]
  - Inflammatory bowel disease [Unknown]
  - Depression [Unknown]
  - Colitis ulcerative [Unknown]
  - Large intestine polyp [Unknown]
  - Female genital tract fistula [Unknown]
  - Anal fistula [Unknown]
  - Irritable bowel syndrome [Unknown]
